FAERS Safety Report 9293299 (Version 2)
Quarter: 2013Q3

REPORT INFORMATION
  Report Type: Spontaneous
  Country: US (occurrence: US)
  Receive Date: 20130516
  Receipt Date: 20130904
  Transmission Date: 20140515
  Serious: Yes (Hospitalization)
  Sender: FDA-Public Use
  Company Number: US-TEVA-405429USA

PATIENT
  Sex: Female
  Weight: 76.27 kg

DRUGS (9)
  1. AZILECT [Suspect]
     Indication: PARKINSON^S DISEASE
     Route: 048
  2. CYCLOBENZAPRINE [Interacting]
  3. IBUPROFEN [Concomitant]
     Indication: PAIN
  4. VITAMIN E [Concomitant]
     Dosage: 400 IU (INTERNATIONAL UNIT) DAILY;
     Route: 048
  5. ZINC [Concomitant]
     Dosage: 50 MILLIGRAM DAILY;
     Route: 048
  6. VITAMIN D3 [Concomitant]
     Dosage: 5000 IU (INTERNATIONAL UNIT) DAILY;
     Route: 048
  7. OMEGA 3 FISH OIL [Concomitant]
     Dosage: 300 MILLIGRAM DAILY;
     Route: 048
  8. COENZYME Q10 [Concomitant]
     Dosage: 30 MILLIGRAM DAILY;
     Route: 048
  9. LEVOTHYROXINE [Concomitant]
     Indication: HYPOTHYROIDISM
     Dosage: 100 MICROGRAM DAILY;
     Route: 048

REACTIONS (20)
  - Hypertensive crisis [Unknown]
  - Chest discomfort [Unknown]
  - Alopecia [Unknown]
  - Dyspepsia [Unknown]
  - Nausea [Unknown]
  - Eructation [Unknown]
  - Muscle contractions involuntary [Unknown]
  - Muscle twitching [Unknown]
  - Asthenia [Unknown]
  - Fatigue [Unknown]
  - Abdominal pain upper [Unknown]
  - Balance disorder [Unknown]
  - Flushing [Unknown]
  - Hyperhidrosis [Unknown]
  - Weight decreased [Unknown]
  - Decreased appetite [Unknown]
  - Rhinorrhoea [Unknown]
  - Coordination abnormal [Unknown]
  - Hypersensitivity [Unknown]
  - Drug interaction [Unknown]
